FAERS Safety Report 9943992 (Version 2)
Quarter: 2014Q2

REPORT INFORMATION
  Report Type: Spontaneous
  Country: US (occurrence: US)
  Receive Date: 20140303
  Receipt Date: 20140401
  Transmission Date: 20141212
  Serious: No
  Sender: FDA-Public Use
  Company Number: US-009507513-1402USA012310

PATIENT
  Age: 36 Year
  Sex: Male

DRUGS (1)
  1. JANUMET [Suspect]
     Indication: TYPE 2 DIABETES MELLITUS
     Dosage: 50/500MG TAKEN TWICE DAILY
     Route: 048
     Dates: start: 20140114

REACTIONS (1)
  - Pruritus [Not Recovered/Not Resolved]
